FAERS Safety Report 9394390 (Version 1)
Quarter: 2013Q3

REPORT INFORMATION
  Report Type: Spontaneous
  Country: BE (occurrence: BE)
  Receive Date: 20130711
  Receipt Date: 20130711
  Transmission Date: 20140515
  Serious: Yes (Hospitalization)
  Sender: FDA-Public Use
  Company Number: BE-AMGEN-BELSP2013047778

PATIENT
  Age: 79 Year
  Sex: Female
  Weight: 60 kg

DRUGS (8)
  1. PROLIA [Suspect]
     Indication: OSTEOPOROSIS
     Dosage: 60 MG, Q6MO
     Route: 058
     Dates: start: 20120906, end: 20130308
  2. DIPROPHOS [Concomitant]
     Indication: RHEUMATOID ARTHRITIS
     Dosage: UNK UNK, Q2MO
     Route: 030
     Dates: start: 2009, end: 20130318
  3. LASIX                              /00032601/ [Concomitant]
     Indication: HYPERTENSION
     Dosage: 40 MG, QD
     Route: 048
     Dates: start: 20121227
  4. RENITEC                            /00574902/ [Concomitant]
     Indication: HYPERTENSION
     Dosage: 1/2 TABLET
     Route: 048
     Dates: start: 2009
  5. PRAVASTATINE [Concomitant]
     Indication: HYPERCHOLESTEROLAEMIA
     Dosage: 40 MG, QD
     Route: 048
     Dates: start: 20120127
  6. TEMESTA                            /00273201/ [Concomitant]
     Indication: MUCOSAL INFLAMMATION
     Dosage: 2.5 MG, QD
     Route: 048
     Dates: start: 2000
  7. STAURODORM                         /00135801/ [Concomitant]
     Indication: INSOMNIA
     Dosage: 27 MG, QD
     Route: 048
     Dates: start: 2006
  8. QUININE SULFATE [Concomitant]
     Indication: MUSCLE SPASMS
     Dosage: 50 MG, QD
     Route: 048
     Dates: start: 2006

REACTIONS (3)
  - Femur fracture [Recovering/Resolving]
  - Pain [Recovering/Resolving]
  - Dysstasia [Recovering/Resolving]
